FAERS Safety Report 25414054 (Version 1)
Quarter: 2025Q2

REPORT INFORMATION
  Report Type: Spontaneous
  Country: PT (occurrence: PT)
  Receive Date: 20250609
  Receipt Date: 20250609
  Transmission Date: 20250717
  Serious: Yes (Other)
  Sender: BRISTOL-MYERS SQUIBB COMPANY
  Company Number: PT-BRISTOL-MYERS SQUIBB COMPANY-2025-078957

PATIENT

DRUGS (1)
  1. MAVACAMTEN [Suspect]
     Active Substance: MAVACAMTEN
     Indication: Hypertrophic cardiomyopathy

REACTIONS (3)
  - Non-obstructive cardiomyopathy [Recovering/Resolving]
  - Condition aggravated [Recovering/Resolving]
  - Electrocardiogram abnormal [Recovering/Resolving]
